FAERS Safety Report 25253203 (Version 1)
Quarter: 2025Q2

REPORT INFORMATION
  Report Type: Spontaneous
  Country: US (occurrence: US)
  Receive Date: 20250430
  Receipt Date: 20250430
  Transmission Date: 20250717
  Serious: No
  Sender: SANDOZ
  Company Number: US-SANDOZ-SDZ2025US027003

PATIENT
  Age: 51 Year
  Sex: Female
  Weight: 75.28 kg

DRUGS (1)
  1. COMBIPATCH [Suspect]
     Active Substance: ESTRADIOL\NORETHINDRONE ACETATE
     Indication: Menopausal symptoms
     Route: 062

REACTIONS (2)
  - Hot flush [Recovering/Resolving]
  - Vertigo [Recovering/Resolving]
